FAERS Safety Report 9777121 (Version 2)
Quarter: 2014Q2

REPORT INFORMATION
  Report Type: Report from Study
  Country: JP (occurrence: JP)
  Receive Date: 20131221
  Receipt Date: 20140522
  Transmission Date: 20141212
  Serious: Yes (Death)
  Sender: FDA-Public Use
  Company Number: JP-ROCHE-1321906

PATIENT
  Age: 79 Year
  Sex: Female

DRUGS (1)
  1. METHOXY POLYETHYLENE GLYCOL-EPOETIN BETA [Suspect]
     Indication: NEPHROGENIC ANAEMIA
     Route: 058
     Dates: start: 20121027, end: 20121127

REACTIONS (3)
  - Staphylococcal sepsis [Fatal]
  - Disseminated intravascular coagulation [Fatal]
  - Lower gastrointestinal haemorrhage [Fatal]
